FAERS Safety Report 9332815 (Version 2)
Quarter: 2013Q2

REPORT INFORMATION
  Report Type: Spontaneous
  Country: FR (occurrence: FR)
  Receive Date: 20130606
  Receipt Date: 20130621
  Transmission Date: 20140414
  Serious: Yes (Other)
  Sender: FDA-Public Use
  Company Number: FR-UCBSA-087326

PATIENT
  Age: 63 Year
  Sex: Male
  Weight: 90 kg

DRUGS (8)
  1. VIMPAT [Suspect]
     Indication: PARTIAL SEIZURES
     Dosage: UPTITRATION UPTO 150 MG X 2 DAILY
     Route: 048
     Dates: start: 201305, end: 201305
  2. VIMPAT [Suspect]
     Indication: PARTIAL SEIZURES
     Dosage: INCREASED TO 100 MG X 2 DAILY
     Route: 048
     Dates: start: 2013, end: 20130524
  3. VIMPAT [Suspect]
     Indication: PARTIAL SEIZURES
     Dosage: 50 MG X2 DAILY
     Route: 048
     Dates: start: 20130424, end: 2013
  4. KEPPRA [Concomitant]
     Indication: EPILEPSY
     Dates: end: 20130513
  5. PHENOBARBITAL [Concomitant]
     Indication: PARTIAL SEIZURES
     Dates: start: 2013
  6. COAPROVEL [Concomitant]
     Indication: HYPERTENSION
     Dosage: 300/12.5 MG
     Route: 048
  7. XATRAL PL [Concomitant]
     Indication: PROSTATIC ADENOMA
     Dosage: 10 MG
     Route: 048
     Dates: start: 20130420
  8. URBANYL [Concomitant]
     Indication: EPILEPSY
     Dosage: 10 MG
     Route: 048
     Dates: start: 201303

REACTIONS (3)
  - Paranoia [Not Recovered/Not Resolved]
  - Hallucination, visual [Recovered/Resolved]
  - Aggression [Recovered/Resolved]
